FAERS Safety Report 9677794 (Version 1)
Quarter: 2013Q4

REPORT INFORMATION
  Report Type: Spontaneous
  Country: GB (occurrence: GB)
  Receive Date: 20131108
  Receipt Date: 20131108
  Transmission Date: 20140711
  Serious: Yes (Other)
  Sender: FDA-Public Use
  Company Number: GB-TEVA-441480ISR

PATIENT
  Age: 14 Year
  Sex: Male

DRUGS (2)
  1. OLANZAPINE [Suspect]
     Route: 065
  2. SODIUM VALPROATE [Concomitant]
     Dosage: TITRATED TO THIS DOSAGE
     Route: 065

REACTIONS (2)
  - Mental impairment [Recovered/Resolved]
  - Product substitution issue [Recovered/Resolved]
